FAERS Safety Report 5140305-2 (Version None)
Quarter: 2006Q4

REPORT INFORMATION
  Report Type: 
  Country: None (occurrence: None)
  Receive Date: 20061031
  Receipt Date: 20061027
  Transmission Date: 20070319
  Serious: Yes (Hospitalization)
  Sender: FDA-Public Use
  Company Number: FR-GLAXOSMITHKLINE-B0444312A

PATIENT
  Age: 56 Year
  Sex: Male

DRUGS (8)
  1. CLAMOXYL [Suspect]
     Indication: CYST
     Route: 048
     Dates: start: 20060926, end: 20061001
  2. HEPSERA [Suspect]
     Route: 048
     Dates: start: 20060928, end: 20061006
  3. CARDENSIEL [Suspect]
     Route: 048
     Dates: end: 20061005
  4. TAREG [Suspect]
     Route: 048
     Dates: end: 20061005
  5. ZEFFIX [Concomitant]
     Route: 065
  6. OMEPRAZOLE [Concomitant]
     Route: 065
  7. CACIT D3 [Concomitant]
     Route: 065
  8. CORTANCYL [Concomitant]
     Route: 065

REACTIONS (6)
  - HYPOTENSION [None]
  - PRURIGO [None]
  - PYREXIA [None]
  - RASH [None]
  - RASH MORBILLIFORM [None]
  - TOXIC SKIN ERUPTION [None]
